FAERS Safety Report 5559845-7 (Version None)
Quarter: 2007Q4

REPORT INFORMATION
  Report Type: 
  Country: None (occurrence: None)
  Receive Date: 20071214
  Receipt Date: 20071017
  Transmission Date: 20080405
  Serious: No
  Sender: FDA-Public Use
  Company Number: US-ABBOTT-07P-163-0421278-00

PATIENT
  Sex: Female
  Weight: 68.1 kg

DRUGS (3)
  1. HUMIRA [Suspect]
     Indication: RHEUMATOID ARTHRITIS
     Dosage: PEN
     Route: 058
     Dates: start: 20060801
  2. HUMIRA [Suspect]
     Dosage: SYRINGE
     Route: 058
     Dates: start: 20050101, end: 20060801
  3. FLU VACCINE [Suspect]
     Indication: INFLUENZA IMMUNISATION
     Route: 030
     Dates: start: 20071011, end: 20071011

REACTIONS (2)
  - INFLUENZA LIKE ILLNESS [None]
  - ORAL HERPES [None]
